FAERS Safety Report 11744557 (Version 1)
Quarter: 2015Q4

REPORT INFORMATION
  Report Type: Spontaneous
  Country: US (occurrence: US)
  Receive Date: 20151116
  Receipt Date: 20151116
  Transmission Date: 20160304
  Serious: Yes (Other)
  Sender: FDA-Public Use
  Company Number: US-PFIZER INC-2015382512

PATIENT
  Age: 44 Year
  Sex: Male
  Weight: 45 kg

DRUGS (5)
  1. PANTOPRAZOLE [Concomitant]
     Active Substance: PANTOPRAZOLE SODIUM
     Dosage: 40 MG, DAILY
  2. PRADAXA [Concomitant]
     Active Substance: DABIGATRAN ETEXILATE MESYLATE
     Indication: CEREBROVASCULAR ACCIDENT
     Dosage: 150 MG, 2X/DAY
  3. LASIX [Concomitant]
     Active Substance: FUROSEMIDE
     Dosage: 40 MG, DAILY
  4. REVATIO [Suspect]
     Active Substance: SILDENAFIL CITRATE
     Dosage: 20 MG, 3X/DAY
  5. METOPROLOL [Concomitant]
     Active Substance: METOPROLOL
     Indication: ARRHYTHMIA SUPRAVENTRICULAR
     Dosage: 200 MG, 2X/DAY

REACTIONS (11)
  - Abdominal pain [Unknown]
  - Diarrhoea [Unknown]
  - Blood pressure decreased [Unknown]
  - Thyroid neoplasm [Unknown]
  - Drug ineffective [Unknown]
  - Pre-existing condition improved [Unknown]
  - Therapeutic response unexpected [Unknown]
  - Dyspnoea [Unknown]
  - Peripheral swelling [Unknown]
  - Cholelithiasis [Unknown]
  - Goitre [Unknown]

NARRATIVE: CASE EVENT DATE: 20150327
